FAERS Safety Report 7406285-1 (Version None)
Quarter: 2011Q2

REPORT INFORMATION
  Report Type: 
  Country: None (occurrence: None)
  Receive Date: 20110411
  Receipt Date: 20110401
  Transmission Date: 20111010
  Serious: Yes (Other)
  Sender: FDA-Public Use
  Company Number: TR-JNJFOC-20110401707

PATIENT
  Age: 44 Year
  Sex: Female
  Weight: 69 kg

DRUGS (7)
  1. DOXORUBICIN HCL [Suspect]
     Route: 042
  2. DOXORUBICIN HCL [Suspect]
     Route: 042
  3. DOXORUBICIN HCL [Suspect]
     Indication: OVARIAN CANCER
     Route: 042
  4. DEXAMETHASONE [Concomitant]
     Indication: PREMEDICATION
  5. DOXORUBICIN HCL [Suspect]
     Route: 042
  6. PHENIRAMINE [Concomitant]
     Indication: PREMEDICATION
  7. ONDANSETRON [Concomitant]
     Indication: PREMEDICATION

REACTIONS (1)
  - PIGMENTATION DISORDER [None]
